FAERS Safety Report 8077302-3 (Version None)
Quarter: 2012Q1

REPORT INFORMATION
  Report Type: 
  Country: None (occurrence: None)
  Receive Date: 20120127
  Receipt Date: 20120117
  Transmission Date: 20120608
  Serious: Yes (Death)
  Sender: FDA-Public Use
  Company Number: GR-JNJFOC-20120106148

PATIENT
  Age: 55 Year
  Sex: Female

DRUGS (2)
  1. REMICADE [Suspect]
     Indication: CROHN'S DISEASE
     Route: 042
     Dates: start: 20011201, end: 20120101
  2. AZATHIOPRINE [Suspect]
     Indication: CROHN'S DISEASE
     Dosage: 50 MG TO 100 MG DAILY, DEPENDING UPON THE PATIENT'S CONDITION. STOP DATE REPORTED AS JAN-2012.
     Dates: start: 20010101

REACTIONS (4)
  - ACUTE RESPIRATORY DISTRESS SYNDROME [None]
  - JEJUNAL PERFORATION [None]
  - SEPSIS [None]
  - INTESTINAL T-CELL LYMPHOMA [None]
